FAERS Safety Report 7701100-0 (Version None)
Quarter: 2011Q3

REPORT INFORMATION
  Report Type: 
  Country: None (occurrence: None)
  Receive Date: 20110822
  Receipt Date: 20110815
  Transmission Date: 20111222
  Serious: No
  Sender: FDA-Public Use
  Company Number: US-PFIZER INC-2011188353

PATIENT
  Sex: Male

DRUGS (1)
  1. CLEOCIN HYDROCHLORIDE [Suspect]
     Dosage: UNK

REACTIONS (1)
  - DRUG INTOLERANCE [None]
